FAERS Safety Report 24706655 (Version 1)
Quarter: 2024Q4

REPORT INFORMATION
  Report Type: Spontaneous
  Country: US (occurrence: None)
  Receive Date: 20241206
  Receipt Date: 20241206
  Transmission Date: 20250115
  Serious: Yes (Hospitalization)
  Sender: Public
  Company Number: None

PATIENT
  Age: 67 Year
  Sex: Female

DRUGS (9)
  1. TEZSPIRE [Suspect]
     Active Substance: TEZEPELUMAB-EKKO
     Dosage: OTHER STRENGTH : 210MG/1.91;?OTHER QUANTITY : 210MG/1.91;?OTHER FREQUENCY : EVERY 28 DAYS;?
     Route: 058
     Dates: start: 202408, end: 20241205
  2. LIPITOR [Concomitant]
     Active Substance: ATORVASTATIN CALCIUM
  3. ALBUTEROL SULFATE [Concomitant]
     Active Substance: ALBUTEROL SULFATE
  4. MAGNESIUM [Concomitant]
     Active Substance: MAGNESIUM
  5. VITAMINS [Concomitant]
     Active Substance: VITAMINS
  6. HYDROCONDONE/ACETAMINOPHEN [Concomitant]
  7. MUCINEX [Concomitant]
     Active Substance: GUAIFENESIN
  8. FLONASE [Concomitant]
     Active Substance: FLUTICASONE PROPIONATE
  9. BUSPIRONE HCL [Concomitant]
     Active Substance: BUSPIRONE HYDROCHLORIDE

REACTIONS (5)
  - Eye pain [None]
  - Lacrimation increased [None]
  - Dyspnoea [None]
  - Haemoptysis [None]
  - Therapy cessation [None]

NARRATIVE: CASE EVENT DATE: 20241203
